FAERS Safety Report 15923164 (Version 1)
Quarter: 2019Q1

REPORT INFORMATION
  Report Type: Spontaneous
  Country: US (occurrence: US)
  Receive Date: 20190206
  Receipt Date: 20190206
  Transmission Date: 20190417
  Serious: Yes (Other)
  Sender: FDA-Public Use
  Company Number: US-PFIZER INC-2019051583

PATIENT
  Age: 65 Year
  Sex: Female

DRUGS (1)
  1. ZITHROMAX [Suspect]
     Active Substance: AZITHROMYCIN DIHYDRATE
     Indication: OBLITERATIVE BRONCHIOLITIS
     Dosage: 250 MG, THREE TIMES PER WEEK ON MONDAY, WEDNESDAY AND FRIDAY AS DIRECTED
     Route: 048

REACTIONS (3)
  - Disease progression [Unknown]
  - Drug ineffective [Unknown]
  - Product use issue [Unknown]
